FAERS Safety Report 8471865-1 (Version None)
Quarter: 2012Q2

REPORT INFORMATION
  Report Type: 
  Country: None (occurrence: None)
  Receive Date: 20120627
  Receipt Date: 20120619
  Transmission Date: 20120825
  Serious: Yes (Hospitalization)
  Sender: FDA-Public Use
  Company Number: US-BAYER-2012-061068

PATIENT
  Age: 25 Year
  Sex: Female
  Weight: 81.633 kg

DRUGS (7)
  1. SIMVASTATIN [Concomitant]
     Dosage: UNK
     Dates: start: 20090619
  2. SIMVASTATIN [Concomitant]
     Dosage: 10 MG, BEDTIME
  3. SPIRONOLACTONE [Concomitant]
     Dosage: UNK
  4. YASMIN [Suspect]
     Indication: POLYCYSTIC OVARIES
     Dosage: UNK
     Dates: start: 20070728, end: 20070905
  5. FISH OIL [Concomitant]
     Dosage: UNK
     Route: 048
  6. BENADRYL [Concomitant]
     Dosage: UNK UNK, PRN
     Route: 048
  7. IBUPROFEN (ADVIL) [Concomitant]
     Dosage: UNK UNK, PRN
     Route: 048
     Dates: start: 20070905

REACTIONS (9)
  - HYPOAESTHESIA [None]
  - TRANSIENT ISCHAEMIC ATTACK [None]
  - PAIN [None]
  - CEREBROVASCULAR ACCIDENT [None]
  - CEREBRAL INFARCTION [None]
  - INJURY [None]
  - CEREBELLAR INFARCTION [None]
  - GLIOSIS [None]
  - CEREBRAL ISCHAEMIA [None]
